FAERS Safety Report 20720995 (Version 1)
Quarter: 2022Q2

REPORT INFORMATION
  Report Type: Spontaneous
  Country: ES (occurrence: None)
  Receive Date: 20220415
  Receipt Date: 20220415
  Transmission Date: 20220721
  Serious: Yes (unspecified)
  Sender: FDA-Public Use
  Company Number: None

PATIENT
  Age: 41 Year
  Sex: Male
  Weight: 67 kg

DRUGS (1)
  1. ABILIFY MAINTENA [Suspect]
     Active Substance: ARIPIPRAZOLE
     Dosage: OTHER FREQUENCY : ONCE PER MONTH;?
     Route: 030
     Dates: start: 20081002

REACTIONS (2)
  - Adverse drug reaction [None]
  - Libido disorder [None]

NARRATIVE: CASE EVENT DATE: 20161210
